FAERS Safety Report 15997188 (Version 1)
Quarter: 2019Q1

REPORT INFORMATION
  Report Type: Spontaneous
  Country: US (occurrence: US)
  Receive Date: 20190222
  Receipt Date: 20190222
  Transmission Date: 20190418
  Serious: Yes (Other)
  Sender: FDA-Public Use
  Company Number: US-JNJFOC-20190231951

PATIENT

DRUGS (4)
  1. CYTARABINE. [Suspect]
     Active Substance: CYTARABINE
     Indication: MANTLE CELL LYMPHOMA
     Route: 065
  2. DOXORUBICIN HYDROCHLORIDE. [Suspect]
     Active Substance: DOXORUBICIN HYDROCHLORIDE
     Indication: MANTLE CELL LYMPHOMA
     Route: 065
  3. DOXORUBICIN HYDROCHLORIDE. [Suspect]
     Active Substance: DOXORUBICIN HYDROCHLORIDE
     Indication: DIFFUSE LARGE B-CELL LYMPHOMA
     Route: 065
  4. CYTARABINE. [Suspect]
     Active Substance: CYTARABINE
     Indication: DIFFUSE LARGE B-CELL LYMPHOMA
     Route: 065

REACTIONS (13)
  - Febrile neutropenia [Unknown]
  - Product use in unapproved indication [Unknown]
  - Neurotoxicity [Unknown]
  - Clostridium difficile infection [Unknown]
  - Thrombocytopenia [Unknown]
  - Cystitis [Unknown]
  - Pneumonia [Unknown]
  - Bacteraemia [Unknown]
  - Off label use [Unknown]
  - Mucosal inflammation [Unknown]
  - Neutropenia [Unknown]
  - Fungal infection [Unknown]
  - Nausea [Unknown]
